FAERS Safety Report 4733104-4 (Version None)
Quarter: 2005Q3

REPORT INFORMATION
  Report Type: 
  Country: None (occurrence: None)
  Receive Date: 20050803
  Receipt Date: 20050426
  Transmission Date: 20060218
  Serious: Yes (Death)
  Sender: FDA-Public Use
  Company Number: US-MERCK-0504USA04807

PATIENT
  Age: 71 Year
  Sex: Male
  Weight: 114 kg

DRUGS (3)
  1. VIOXX [Suspect]
     Indication: ARTHRITIS
     Route: 048
     Dates: start: 20020601, end: 20030401
  2. HYDRODIURIL [Concomitant]
     Indication: HYPERTENSION
     Route: 048
  3. CHLORDIAZEPOXIDE [Concomitant]
     Indication: SLEEP DISORDER
     Route: 065

REACTIONS (5)
  - CARDIAC MURMUR [None]
  - HYPERTENSION [None]
  - LIGAMENT INJURY [None]
  - MYOCARDIAL INFARCTION [None]
  - SLEEP DISORDER [None]
